FAERS Safety Report 4525273-6 (Version None)
Quarter: 2004Q4

REPORT INFORMATION
  Report Type: 
  Country: None (occurrence: None)
  Receive Date: 20041116
  Receipt Date: 20040727
  Transmission Date: 20050328
  Serious: No
  Sender: FDA-Public Use
  Company Number: S04-USA-05545-01

PATIENT
  Age: 87 Year
  Sex: Female

DRUGS (11)
  1. NAMENDA [Suspect]
     Indication: MEMORY IMPAIRMENT
     Dosage: SEE IMAGE
     Route: 048
     Dates: start: 20040701, end: 20040701
  2. NAMENDA [Suspect]
     Indication: MEMORY IMPAIRMENT
     Dosage: SEE IMAGE
     Route: 048
     Dates: start: 20040701, end: 20040701
  3. NEXIUM [Concomitant]
  4. DILTIAZEM [Concomitant]
  5. BENICAR [Concomitant]
  6. REMINYL [Concomitant]
  7. ASPIRIN [Concomitant]
  8. DARVOCET [Concomitant]
  9. MIACALCIN SPRAY [Concomitant]
  10. PAXIL [Concomitant]
  11. MULTI-VITAMIN [Concomitant]

REACTIONS (1)
  - VISION BLURRED [None]
